FAERS Safety Report 8488006-7 (Version None)
Quarter: 2012Q3

REPORT INFORMATION
  Report Type: 
  Country: None (occurrence: None)
  Receive Date: 20120705
  Receipt Date: 20120629
  Transmission Date: 20120928
  Serious: Yes (Other)
  Sender: FDA-Public Use
  Company Number: PHHY2012JP055903

PATIENT
  Age: 52 Year
  Sex: Female

DRUGS (6)
  1. TACROLIMUS [Concomitant]
     Indication: IMMUNOSUPPRESSION
  2. PREDNISOLONE [Concomitant]
     Indication: IMMUNOSUPPRESSION
  3. VALSARTAN [Concomitant]
     Dosage: 160 MG, PER DAY
  4. BASILIXIMAB [Suspect]
     Indication: RENAL TRANSPLANT
  5. MYCOPHENOLATE MOFETIL [Concomitant]
     Indication: IMMUNOSUPPRESSION
  6. RITUXIMAB [Concomitant]
     Indication: IMMUNOSUPPRESSION

REACTIONS (12)
  - RENAL IMPAIRMENT [None]
  - BLOOD CREATININE INCREASED [None]
  - CYTOMEGALOVIRUS INFECTION [None]
  - LYMPHOCYTIC INFILTRATION [None]
  - ARTERITIS [None]
  - CAPILLARITIS [None]
  - ARTERIOSCLEROSIS [None]
  - CHRONIC ALLOGRAFT NEPHROPATHY [None]
  - PROTEINURIA [None]
  - IGA NEPHROPATHY [None]
  - GLOMERULONEPHRITIS MEMBRANOPROLIFERATIVE [None]
  - OEDEMA [None]
